FAERS Safety Report 8474836-4 (Version None)
Quarter: 2012Q2

REPORT INFORMATION
  Report Type: 
  Country: None (occurrence: None)
  Receive Date: 20120628
  Receipt Date: 20120618
  Transmission Date: 20120825
  Serious: Yes (Death, Hospitalization)
  Sender: FDA-Public Use
  Company Number: IT-BRISTOL-MYERS SQUIBB COMPANY-15949712

PATIENT
  Age: 63 Year

DRUGS (1)
  1. ENTECAVIR [Suspect]
     Indication: HEPATITIS B

REACTIONS (6)
  - SEPTIC SHOCK [None]
  - ASPERGILLOSIS [None]
  - JAUNDICE [None]
  - LACTIC ACIDOSIS [None]
  - ASCITES [None]
  - PNEUMONIA [None]
